FAERS Safety Report 5061361-6 (Version None)
Quarter: 2006Q3

REPORT INFORMATION
  Report Type: 
  Country: None (occurrence: None)
  Receive Date: 20060703
  Receipt Date: 20060330
  Transmission Date: 20061208
  Serious: No
  Sender: FDA-Public Use
  Company Number: 2006PV011181

PATIENT
  Age: 69 Year
  Sex: Female
  Weight: 77.1115 kg

DRUGS (13)
  1. SYMLIN [Suspect]
     Indication: DIABETES MELLITUS INSULIN-DEPENDENT
     Dosage: 60 MCG;TID;SC
     Route: 058
     Dates: start: 20060220
  2. HUMALOG [Concomitant]
  3. COZAAR [Concomitant]
  4. SYNTHROID [Concomitant]
  5. PROZAC [Concomitant]
  6. ZOCOR [Concomitant]
  7. ZIAC [Concomitant]
  8. PRILOSEC [Concomitant]
  9. BIOTIN [Concomitant]
  10. ASPIRIN [Concomitant]
  11. NASONEX [Concomitant]
  12. VITAMINS [Concomitant]
  13. ALLERGY MEDICATION [Concomitant]

REACTIONS (1)
  - CHEST X-RAY ABNORMAL [None]
